FAERS Safety Report 6215147-7 (Version None)
Quarter: 2009Q2

REPORT INFORMATION
  Report Type: 
  Country: None (occurrence: None)
  Receive Date: 20090604
  Receipt Date: 20090403
  Transmission Date: 20091009
  Serious: No
  Sender: FDA-Public Use
  Company Number: US-ASTRAZENECA-2009UW08538

PATIENT
  Age: 57 Year
  Sex: Female
  Weight: 74.8 kg

DRUGS (6)
  1. PRILOSEC [Suspect]
     Indication: GASTROOESOPHAGEAL REFLUX DISEASE
     Route: 048
     Dates: start: 19950401
  2. LORTAB [Concomitant]
     Indication: PAIN
  3. CLONAZEPAM [Concomitant]
     Indication: ANXIETY
  4. TRIAMTERENE [Concomitant]
     Indication: FLUID RETENTION
  5. PAMELOR [Concomitant]
  6. CELEBREX [Concomitant]

REACTIONS (2)
  - GASTROOESOPHAGEAL REFLUX DISEASE [None]
  - LARYNGEAL OEDEMA [None]
